FAERS Safety Report 7416267-1 (Version None)
Quarter: 2011Q2

REPORT INFORMATION
  Report Type: 
  Country: None (occurrence: None)
  Receive Date: 20110414
  Receipt Date: 20110413
  Transmission Date: 20111010
  Serious: Yes (Hospitalization, Other)
  Sender: FDA-Public Use
  Company Number: A0919564A

PATIENT
  Age: 15 Year
  Sex: Female

DRUGS (6)
  1. SYNTHROID [Concomitant]
  2. LOESTRIN FE 1/20 [Concomitant]
  3. METHIMAZOLE [Concomitant]
  4. VELTIN [Suspect]
     Route: 061
     Dates: start: 20110208
  5. MINOCYCLINE [Concomitant]
     Route: 048
  6. DUAC [Suspect]
     Route: 061
     Dates: start: 20110208

REACTIONS (3)
  - HEADACHE [None]
  - BENIGN INTRACRANIAL HYPERTENSION [None]
  - DIPLOPIA [None]
